FAERS Safety Report 10248637 (Version 1)
Quarter: 2014Q2

REPORT INFORMATION
  Report Type: Spontaneous
  Country: US (occurrence: None)
  Receive Date: 20140617
  Receipt Date: 20140617
  Transmission Date: 20141212
  Serious: Yes (Hospitalization)
  Sender: FDA-Public Use
  Company Number: None

PATIENT
  Age: 89 Year
  Sex: Male
  Weight: 66 kg

DRUGS (9)
  1. XARELTO [Suspect]
     Indication: ATRIAL FIBRILLATION
     Dosage: 1 PILL QD ORAL
     Route: 048
  2. DILTIAZEM [Concomitant]
  3. FUROSEMIDE [Concomitant]
  4. VICODIN [Concomitant]
  5. MAG OX TABS [Concomitant]
  6. METOPROLOL TAB [Concomitant]
  7. FLOMAX [Concomitant]
  8. POTASSIUM GLUCONATE TAB [Concomitant]
  9. APA [Concomitant]

REACTIONS (1)
  - Lower gastrointestinal haemorrhage [None]
